FAERS Safety Report 20991133 (Version 1)
Quarter: 2022Q2

REPORT INFORMATION
  Report Type: Spontaneous
  Country: US (occurrence: US)
  Receive Date: 20220622
  Receipt Date: 20220622
  Transmission Date: 20220720
  Serious: No
  Sender: FDA-Public Use
  Company Number: US-SUN PHARMACEUTICAL INDUSTRIES LTD-2022R1-336560

PATIENT
  Sex: Male

DRUGS (1)
  1. LOTEPREDNOL [Suspect]
     Active Substance: LOTEPREDNOL
     Indication: Product used for unknown indication
     Dosage: UNK
     Route: 047
     Dates: start: 20220427

REACTIONS (3)
  - Condition aggravated [Unknown]
  - Intraocular pressure increased [Unknown]
  - Eye pain [Unknown]
